FAERS Safety Report 12458394 (Version 3)
Quarter: 2016Q2

REPORT INFORMATION
  Report Type: Spontaneous
  Country: US (occurrence: US)
  Receive Date: 20160613
  Receipt Date: 20160628
  Transmission Date: 20160815
  Serious: Yes (Hospitalization)
  Sender: FDA-Public Use
  Company Number: US-HORIZON-RAV-0103-2016

PATIENT
  Age: 2 Year
  Sex: Male

DRUGS (1)
  1. RAVICTI [Suspect]
     Active Substance: GLYCEROL PHENYLBUTYRATE
     Indication: UREA CYCLE ENZYME DEFICIENCY
     Dosage: 2 ML TID; DOSE REPORTED ON 16-JUN-2016: 1.5 ML FOUR TIMES DAILY

REACTIONS (3)
  - Hyperammonaemia [Recovered/Resolved]
  - Lung infection [Recovering/Resolving]
  - Liver injury [Not Recovered/Not Resolved]

NARRATIVE: CASE EVENT DATE: 20160607
